FAERS Safety Report 8433620-8 (Version None)
Quarter: 2012Q2

REPORT INFORMATION
  Report Type: 
  Country: None (occurrence: None)
  Receive Date: 20120613
  Receipt Date: 20120604
  Transmission Date: 20120825
  Serious: Yes (Other)
  Sender: FDA-Public Use
  Company Number: US-ASTRAZENECA-2012SE37414

PATIENT
  Age: 62 Year
  Sex: Female

DRUGS (2)
  1. ADDERALL 5 [Concomitant]
  2. SEROQUEL [Suspect]
     Route: 048

REACTIONS (4)
  - MENTAL IMPAIRMENT [None]
  - INSOMNIA [None]
  - RENAL CANCER [None]
  - DRUG DOSE OMISSION [None]
